FAERS Safety Report 16890630 (Version 1)
Quarter: 2019Q4

REPORT INFORMATION
  Report Type: Spontaneous
  Country: US (occurrence: US)
  Receive Date: 20191005
  Receipt Date: 20191005
  Transmission Date: 20200122
  Serious: Yes (Death)
  Sender: FDA-Public Use
  Company Number: None

PATIENT
  Age: 75 Year
  Sex: Male

DRUGS (1)
  1. DEPO-MEDROL [Suspect]
     Active Substance: METHYLPREDNISOLONE ACETATE
     Indication: CHRONIC OBSTRUCTIVE PULMONARY DISEASE
     Dosage: ?          OTHER FREQUENCY:1 TIME DOSE;?
     Route: 058
     Dates: start: 20190807, end: 20190807

REACTIONS (6)
  - Abdominal pain upper [None]
  - Acute psychosis [None]
  - Renal failure [None]
  - Chest pain [None]
  - Mental status changes [None]
  - Haemorrhage [None]

NARRATIVE: CASE EVENT DATE: 20190807
